FAERS Safety Report 5145483-7 (Version None)
Quarter: 2006Q4

REPORT INFORMATION
  Report Type: 
  Country: None (occurrence: None)
  Receive Date: 20061101
  Receipt Date: 20061016
  Transmission Date: 20070319
  Serious: Yes (Hospitalization)
  Sender: FDA-Public Use
  Company Number: US200609007477

PATIENT
  Age: 76 Year
  Sex: Female
  Weight: 78.5 kg

DRUGS (17)
  1. CYMBALTA [Suspect]
     Indication: DRUG USE FOR UNKNOWN INDICATION
     Dosage: 30 MG, DAILY (1/D), ORAL; SEE IMAGE
     Route: 048
     Dates: start: 20060831, end: 20060919
  2. CYMBALTA [Suspect]
     Indication: DRUG USE FOR UNKNOWN INDICATION
     Dosage: 30 MG, DAILY (1/D), ORAL; SEE IMAGE
     Route: 048
     Dates: start: 20060820
  3. ZESTRIL [Concomitant]
  4. RITALIN /UNK/ (METHYLPHENIDATE HYDROCHLORIDE) [Concomitant]
  5. PROTONIX [Concomitant]
  6. REQUIP [Concomitant]
  7. ALDACTONE [Concomitant]
  8. FOSAMAX /ITA/ (ALENDRONATE SODIUM) [Concomitant]
  9. LIPITOR [Concomitant]
  10. ALPHAGAN [Concomitant]
  11. CIPRO [Concomitant]
  12. PLAVIX [Concomitant]
  13. TIMOPTIC [Concomitant]
  14. VERAPAMIL [Concomitant]
  15. XANAX /USA/ (ALPRAZOLAM) [Concomitant]
  16. EXCEDRIN ASPIRIN FREE (CAFFEINE, PARACETAMOL) [Concomitant]
  17. RITALIN - SLOW RELEASE (METHYLPHENIDATE HYDROCHLORIDE) [Concomitant]

REACTIONS (19)
  - ANAEMIA [None]
  - ANXIETY [None]
  - BONE DISORDER [None]
  - DECREASED APPETITE [None]
  - DIZZINESS [None]
  - ELECTROCARDIOGRAM ST-T CHANGE [None]
  - FATIGUE [None]
  - GENERAL PHYSICAL HEALTH DETERIORATION [None]
  - HYPERHIDROSIS [None]
  - HYPONATRAEMIA [None]
  - MUSCLE SPASMS [None]
  - MUSCULAR WEAKNESS [None]
  - NAUSEA [None]
  - PROTEIN TOTAL DECREASED [None]
  - SOMNOLENCE [None]
  - SPINAL COLUMN STENOSIS [None]
  - URINARY RETENTION [None]
  - URINARY TRACT INFECTION [None]
  - VISION BLURRED [None]
